FAERS Safety Report 4595986-9 (Version None)
Quarter: 2005Q1

REPORT INFORMATION
  Report Type: 
  Country: None (occurrence: None)
  Receive Date: 20050224
  Receipt Date: 20050224
  Transmission Date: 20050727
  Serious: Yes (Other)
  Sender: FDA-Public Use
  Company Number: None

PATIENT
  Age: 50 Year
  Sex: Male
  Weight: 156.9 kg

DRUGS (2)
  1. DURAGESIC-100 [Suspect]
     Indication: PAIN
     Dosage: 25-100MCG   Q72 HOUR TRANSDERMAL
     Route: 062
     Dates: start: 20041216, end: 20050106
  2. TPN [Concomitant]

REACTIONS (1)
  - BLOOD SODIUM DECREASED [None]
